FAERS Safety Report 6347379-1 (Version None)
Quarter: 2009Q3

REPORT INFORMATION
  Report Type: 
  Country: None (occurrence: None)
  Receive Date: 20090910
  Receipt Date: 20090901
  Transmission Date: 20100115
  Serious: Yes (Disabling)
  Sender: FDA-Public Use
  Company Number: BE-ASTRAZENECA-2009SE08851

PATIENT
  Age: 563 Month
  Sex: Female
  Weight: 55 kg

DRUGS (5)
  1. SEROQUEL [Suspect]
     Indication: PSYCHOTIC DISORDER
     Route: 048
     Dates: start: 20090120
  2. EFFEXOR [Concomitant]
  3. DOMINAL [Concomitant]
  4. ALPRAZOLAM [Concomitant]
  5. LUTENYL [Concomitant]

REACTIONS (1)
  - COMPLEX REGIONAL PAIN SYNDROME [None]
